FAERS Safety Report 8615741-X (Version None)
Quarter: 2012Q3

REPORT INFORMATION
  Report Type: 
  Country: None (occurrence: None)
  Receive Date: 20120823
  Receipt Date: 20120815
  Transmission Date: 20120928
  Serious: Yes (Other)
  Sender: FDA-Public Use
  Company Number: US-BAXTER-2012BAX013981

PATIENT
  Sex: Female
  Weight: 65.376 kg

DRUGS (3)
  1. GAMMAGARD LIQUID [Suspect]
     Route: 042
     Dates: start: 20120705, end: 20120705
  2. GAMMAGARD LIQUID [Suspect]
     Route: 042
     Dates: start: 20120703, end: 20120710
  3. GAMMAGARD LIQUID [Suspect]
     Indication: IDIOPATHIC THROMBOCYTOPENIC PURPURA
     Route: 042
     Dates: start: 20120703, end: 20120703

REACTIONS (4)
  - COOMBS DIRECT TEST POSITIVE [None]
  - RHESUS ANTIBODIES POSITIVE [None]
  - HAEMOGLOBIN DECREASED [None]
  - PLATELET COUNT DECREASED [None]
